FAERS Safety Report 8927122 (Version 4)
Quarter: 2014Q3

REPORT INFORMATION
  Report Type: Report from Study
  Country: US (occurrence: US)
  Receive Date: 20121127
  Receipt Date: 20140724
  Transmission Date: 20150326
  Serious: Yes (Hospitalization)
  Sender: FDA-Public Use
  Company Number: US-ROCHE-1157620

PATIENT
  Age: 54 Year
  Sex: Female
  Weight: 65.3 kg

DRUGS (8)
  1. ASPIRIN. [Concomitant]
     Active Substance: ASPIRIN
     Route: 065
     Dates: start: 20120529
  2. TYLENOL #3 (UNITED STATES) [Concomitant]
     Dosage: 5/500 MG
     Route: 065
     Dates: start: 2007
  3. RO 5190591 (HCV PROTEASE INHIBITOR) [Suspect]
     Active Substance: DANOPREVIR
     Indication: CHRONIC HEPATITIS C
     Dosage: DATE OF LAST DOSE PRIOR TO SAE- 13/NOV/2012
     Route: 048
     Dates: start: 20120821, end: 20121113
  4. RIBAVIRIN. [Suspect]
     Active Substance: RIBAVIRIN
     Dosage: DATE OF LAST DOSE PRIOR TO SAE- 13/NOV/2012
     Route: 048
     Dates: start: 20120821, end: 20121114
  5. PRILOSEC [Concomitant]
     Active Substance: OMEPRAZOLE MAGNESIUM
     Route: 065
     Dates: start: 20120529
  6. PEGINTERFERON ALFA-2A [Suspect]
     Active Substance: PEGINTERFERON ALFA-2A
     Indication: CHRONIC HEPATITIS C
     Dosage: DATE OF LAST DOSE PRIOR TO SAE- 13/NOV/2012
     Route: 058
     Dates: start: 20120821
  7. RIBAVIRIN. [Suspect]
     Active Substance: RIBAVIRIN
     Indication: CHRONIC HEPATITIS C
     Dosage: DATE OF LAST DOSE PRIOR TO SAE- 13/NOV/2012
     Route: 048
     Dates: start: 20120821, end: 20121114
  8. RITONAVIR [Suspect]
     Active Substance: RITONAVIR
     Indication: CHRONIC HEPATITIS C
     Dosage: DATE OF LAST DOSE PRIOR TO SAE- 13/NOV/2012
     Route: 048
     Dates: start: 20120821, end: 20121114

REACTIONS (1)
  - Pancytopenia [Recovered/Resolved]

NARRATIVE: CASE EVENT DATE: 20121112
